FAERS Safety Report 8094446-0 (Version None)
Quarter: 2012Q1

REPORT INFORMATION
  Report Type: 
  Country: None (occurrence: None)
  Receive Date: 20120130
  Receipt Date: 20120124
  Transmission Date: 20120608
  Serious: Yes (Other)
  Sender: FDA-Public Use
  Company Number: US-CELGENEUS-163-21880-12012524

PATIENT
  Sex: Female
  Weight: 95.34 kg

DRUGS (19)
  1. ZINC SULFATE [Concomitant]
     Route: 065
  2. MULTI-VITAMINS [Concomitant]
     Route: 065
  3. POTASSIUM [Concomitant]
     Route: 065
  4. LEVOTHYROXINE SODIUM [Concomitant]
     Route: 065
  5. PREVACID [Concomitant]
     Route: 065
  6. VITAMIN E [Concomitant]
     Route: 065
  7. REVLIMID [Suspect]
     Indication: MULTIPLE MYELOMA
     Dosage: 10 MILLIGRAM
     Route: 048
     Dates: start: 20120106
  8. ATENOLOL [Concomitant]
     Route: 065
  9. VITAMIN D [Concomitant]
     Route: 065
  10. ZOLOFT [Concomitant]
     Route: 065
  11. MAGNESIUM [Concomitant]
     Route: 065
  12. DETROL [Concomitant]
     Route: 065
  13. VITAMIN B-12 [Concomitant]
     Route: 065
  14. ASPIRIN [Concomitant]
     Route: 065
  15. PRILOSEC [Concomitant]
     Route: 065
  16. CALCIUM [Concomitant]
     Route: 065
  17. LASIX [Concomitant]
     Route: 065
  18. LIPITOR [Concomitant]
     Route: 065
  19. ACETAMINOPHEN [Concomitant]
     Route: 065

REACTIONS (1)
  - LABORATORY TEST ABNORMAL [None]
